FAERS Safety Report 21445890 (Version 1)
Quarter: 2022Q4

REPORT INFORMATION
  Report Type: Spontaneous
  Country: US (occurrence: None)
  Receive Date: 20221011
  Receipt Date: 20221011
  Transmission Date: 20230113
  Serious: Yes (Disabling)
  Sender: FDA-Public Use
  Company Number: None

PATIENT
  Age: 68 Year
  Sex: Female
  Weight: 75.15 kg

DRUGS (14)
  1. NITROFURANTOIN [Suspect]
     Active Substance: NITROFURANTOIN
     Indication: Urinary tract infection
     Dosage: FREQUENCY : TWICE A DAY;?
     Route: 048
     Dates: start: 20210923, end: 20211001
  2. ALLOPURINOL [Concomitant]
     Active Substance: ALLOPURINOL
  3. SYNTHROID [Concomitant]
     Active Substance: LEVOTHYROXINE SODIUM
  4. ATORVASTATIN [Concomitant]
     Active Substance: ATORVASTATIN
  5. LORAZEPAM [Concomitant]
     Active Substance: LORAZEPAM
  6. TRELEGY ELLIPTA [Concomitant]
  7. OXYGEN [Concomitant]
     Active Substance: OXYGEN
  8. FLONASE [Concomitant]
     Active Substance: FLUTICASONE PROPIONATE
  9. ALBUTEROL [Concomitant]
     Active Substance: ALBUTEROL
  10. COMPAZINE [Concomitant]
     Active Substance: PROCHLORPERAZINE MALEATE
  11. EPIPEN [Concomitant]
     Active Substance: EPINEPHRINE
  12. LOSARTAN [Concomitant]
     Active Substance: LOSARTAN
  13. VITAMIN B12 [Concomitant]
     Active Substance: CYANOCOBALAMIN
  14. VITAMIN D NOS [Concomitant]
     Active Substance: VITAMIN D NOS

REACTIONS (4)
  - Neuropathy peripheral [None]
  - Pain [None]
  - Hypoaesthesia [None]
  - Movement disorder [None]

NARRATIVE: CASE EVENT DATE: 20210923
